FAERS Safety Report 6181478-2 (Version None)
Quarter: 2009Q2

REPORT INFORMATION
  Report Type: 
  Country: None (occurrence: None)
  Receive Date: 20090504
  Receipt Date: 20090420
  Transmission Date: 20091009
  Serious: Yes (Hospitalization)
  Sender: FDA-Public Use
  Company Number: ADR1412009 (BFARM REF NO.: DE-BFARM-09048459)

PATIENT
  Age: 85 Year
  Sex: Male

DRUGS (10)
  1. SIMVASTATIN [Suspect]
     Indication: CORONARY ARTERY DISEASE
     Dosage: ORAL
     Route: 048
     Dates: start: 20060701
  2. ACETYLSALICYLIC ACID [Concomitant]
  3. INSULIN ACTRAPID HUMAN [Concomitant]
  4. FALITHROM ^HEXAL^ [Concomitant]
  5. BISOPROLOL [Concomitant]
  6. INSULIN PROTAPHAN HUMAN [Concomitant]
  7. OMEPRAZOLE [Concomitant]
  8. RAMIPRIL [Concomitant]
  9. SERTRALINE HCL [Concomitant]
  10. TORSEMIDE [Concomitant]

REACTIONS (2)
  - DRUG INTERACTION [None]
  - GASTROINTESTINAL HAEMORRHAGE [None]
